FAERS Safety Report 18960675 (Version 1)
Quarter: 2021Q1

REPORT INFORMATION
  Report Type: Spontaneous
  Country: US (occurrence: US)
  Receive Date: 20210303
  Receipt Date: 20210303
  Transmission Date: 20210420
  Serious: Yes (Hospitalization, Other)
  Sender: FDA-Public Use
  Company Number: US-SA-2021SA064994

PATIENT
  Age: 48 Year
  Sex: Female

DRUGS (15)
  1. INOTUZUMAB [Suspect]
     Active Substance: INOTUZUMAB OZOGAMICIN
     Indication: BONE MARROW CONDITIONING REGIMEN
  2. OFATUMUMAB [Suspect]
     Active Substance: OFATUMUMAB
     Indication: BONE MARROW CONDITIONING REGIMEN
  3. RITUXIMAB. [Suspect]
     Active Substance: RITUXIMAB
     Indication: BONE MARROW CONDITIONING REGIMEN
  4. VALACYCLOVIR [Concomitant]
     Active Substance: VALACYCLOVIR HYDROCHLORIDE
     Indication: ANTIVIRAL PROPHYLAXIS
  5. CYTARABINE. [Suspect]
     Active Substance: CYTARABINE
     Indication: BONE MARROW CONDITIONING REGIMEN
  6. BLINATUMOMAB [Suspect]
     Active Substance: BLINATUMOMAB
     Indication: BONE MARROW CONDITIONING REGIMEN
  7. VINCRISTINE SULFATE. [Suspect]
     Active Substance: VINCRISTINE SULFATE
     Indication: BONE MARROW CONDITIONING REGIMEN
  8. CYCLOPHOSPHAMIDE. [Suspect]
     Active Substance: CYCLOPHOSPHAMIDE
     Indication: BONE MARROW CONDITIONING REGIMEN
  9. CLOFARABINE. [Suspect]
     Active Substance: CLOFARABINE
  10. DOXORUBICIN [Suspect]
     Active Substance: DOXORUBICIN
     Indication: BONE MARROW CONDITIONING REGIMEN
  11. ETOPOSIDE. [Suspect]
     Active Substance: ETOPOSIDE
     Indication: BONE MARROW CONDITIONING REGIMEN
  12. DEXAMETHASONE SALT NOT SPECIFIED [Suspect]
     Active Substance: DEXAMETHASONE
     Indication: HAEMOPHAGOCYTIC LYMPHOHISTIOCYTOSIS
  13. IDARUBICIN [Suspect]
     Active Substance: IDARUBICIN
     Indication: BONE MARROW CONDITIONING REGIMEN
  14. FLUDARABINE PHOSPHATE. [Suspect]
     Active Substance: FLUDARABINE PHOSPHATE
     Indication: BONE MARROW CONDITIONING REGIMEN
  15. RUXOLITINIB [Suspect]
     Active Substance: RUXOLITINIB

REACTIONS (6)
  - Human herpesvirus 6 encephalitis [Unknown]
  - Gaze palsy [Unknown]
  - Pyrexia [Unknown]
  - Seizure [Unknown]
  - Limbic encephalitis [Unknown]
  - Haemophagocytic lymphohistiocytosis [Unknown]
